FAERS Safety Report 21942168 (Version 1)
Quarter: 2023Q1

REPORT INFORMATION
  Report Type: Report from Study
  Country: US (occurrence: US)
  Receive Date: 20230202
  Receipt Date: 20230202
  Transmission Date: 20230418
  Serious: No
  Sender: FDA-Public Use
  Company Number: US-EXELIXIS-CABO-22056756

PATIENT
  Sex: Female

DRUGS (4)
  1. CABOMETYX [Suspect]
     Active Substance: CABOZANTINIB S-MALATE
     Indication: Uterine leiomyosarcoma
     Dosage: 40 MG, QD
     Dates: start: 20220915
  2. LEXAPRO [Concomitant]
     Active Substance: ESCITALOPRAM OXALATE
  3. LEVOTHYROXINE [Concomitant]
     Active Substance: LEVOTHYROXINE
  4. OXYCODONE [Concomitant]
     Active Substance: OXYCODONE

REACTIONS (6)
  - Asthenia [Unknown]
  - Diarrhoea [Unknown]
  - Nausea [Unknown]
  - Neoplasm [Unknown]
  - Decreased appetite [Unknown]
  - Off label use [Unknown]
